FAERS Safety Report 4998385-0 (Version None)
Quarter: 2006Q2

REPORT INFORMATION
  Report Type: 
  Country: None (occurrence: None)
  Receive Date: 20060508
  Receipt Date: 20060425
  Transmission Date: 20061013
  Serious: Yes (Hospitalization)
  Sender: FDA-Public Use
  Company Number: 2006056606

PATIENT
  Age: 33 Year
  Sex: Male
  Weight: 69 kg

DRUGS (6)
  1. SOLU-MEDROL [Suspect]
     Indication: ILL-DEFINED DISORDER
     Dosage: 50 MG (INTERVAL: EVERY DAY) INTRAVENOUS
     Route: 042
     Dates: start: 20060227, end: 20060303
  2. POLARAMINE [Suspect]
     Indication: ILL-DEFINED DISORDER
     Dosage: 5 MG (INTERVAL: EVERY DAY) INTRAVENOUS
     Route: 042
     Dates: start: 20060228, end: 20060228
  3. ETOPOSIDE [Suspect]
     Indication: NEOPLASM MALIGNANT
     Dosage: 187 MG(INTERVAL: EVERY DAY) INTRAVENOUS
     Route: 042
     Dates: start: 20060227, end: 20060303
  4. ALL OTHER THERAPEUTIC PRODUCTS [Suspect]
     Indication: NEOPLASM MALIGNANT
     Dosage: 37.5 MG (INTERVAL: EVERY DAY INTRAVENOUS)
     Route: 042
     Dates: start: 20060227, end: 20060303
  5. BLEOMYCIN [Suspect]
     Indication: NEOPLASM MALIGNANT
     Dosage: 30 MG (INTERVAL: EVERY DAY) INTRAVENOUS
     Route: 042
     Dates: start: 20060228, end: 20060228
  6. ZOFRAN [Suspect]
     Indication: ILL-DEFINED DISORDER
     Dosage: 8 MG (INTERVAL: EVERY DAY) INTRAVENOUS
     Route: 042
     Dates: start: 20060227, end: 20060303

REACTIONS (2)
  - PYREXIA [None]
  - TREMOR [None]
